FAERS Safety Report 10268265 (Version 1)
Quarter: 2014Q2

REPORT INFORMATION
  Report Type: Spontaneous
  Country: DE (occurrence: DE)
  Receive Date: 20140630
  Receipt Date: 20140630
  Transmission Date: 20141212
  Serious: Yes (Congenital Anomaly)
  Sender: FDA-Public Use
  Company Number: GXKR2014DE002386

PATIENT
  Sex: 0

DRUGS (2)
  1. OLANZAPINE [Suspect]
     Indication: ANXIETY DISORDER
     Dosage: 5 MG, UNK, 0.-37.5 GW
     Route: 064
     Dates: start: 20120803, end: 20130424
  2. CEFUROXIME [Concomitant]
     Indication: INFECTION PROPHYLAXIS
     Route: 064

REACTIONS (1)
  - Hypospadias [Unknown]
